FAERS Safety Report 5241206-1 (Version None)
Quarter: 2007Q1

REPORT INFORMATION
  Report Type: 
  Country: None (occurrence: None)
  Receive Date: 20070220
  Receipt Date: 20070216
  Transmission Date: 20070707
  Serious: Yes (Death)
  Sender: FDA-Public Use
  Company Number: US-BRISTOL-MYERS SQUIBB COMPANY-13643861

PATIENT
  Sex: Female

DRUGS (12)
  1. COUMADIN [Suspect]
     Indication: ATRIAL FIBRILLATION
     Dosage: ALTERNATING DOSES 1MG, 2.5MG  PT WAS ON COUMADIN PRIOR TO 27-AUG-2002
     Route: 048
     Dates: start: 20020827, end: 20060926
  2. MEVACOR [Concomitant]
  3. MULTI-VITAMIN [Concomitant]
  4. ASCORBIC ACID [Concomitant]
  5. CELEBREX [Concomitant]
  6. ACTONEL [Concomitant]
  7. PROTONIX [Concomitant]
  8. SENOKOT [Concomitant]
  9. ASPIRIN [Concomitant]
  10. CALCIUM + VITAMIN D + PHOSPHORUS [Concomitant]
  11. GLIPIZIDE [Concomitant]
  12. TYLENOL [Concomitant]

REACTIONS (1)
  - DEATH [None]
